FAERS Safety Report 8812415 (Version 2)
Quarter: 2012Q4

REPORT INFORMATION
  Report Type: 
  Country: US (occurrence: US)
  Receive Date: 20120927
  Receipt Date: 20121119
  Transmission Date: 20130627
  Serious: Yes (Death, Other)
  Sender: FDA-Public Use
  Company Number: US-ALEXION PHARMACEUTICALS INC.-A201201785

PATIENT
  Age: 47 Year
  Sex: Female
  Weight: 143 kg

DRUGS (28)
  1. SOLIRIS 300MG [Suspect]
     Indication: HAEMOLYTIC URAEMIC SYNDROME
     Dosage: 900 mg, UNK
     Route: 042
     Dates: start: 20120831, end: 20120914
  2. CALCIUM CARBONATE [Concomitant]
     Dosage: 600 mg, tid
     Route: 048
  3. TRIGLIDE [Concomitant]
     Dosage: 160 mg, qd
     Route: 048
  4. TAXOL [Concomitant]
     Dosage: UNK
  5. FERROUS SULFATE [Concomitant]
     Dosage: 250 mg, bid
     Route: 048
  6. LEVSIN [Concomitant]
     Dosage: 0.125 mg, TID
     Route: 060
  7. LANTUS [Concomitant]
     Dosage: 20 ut, qd pm
  8. LACTOBACILLUS [Concomitant]
     Dosage: UNK, tid
     Route: 048
  9. LORAZEPAM [Concomitant]
     Dosage: 0.5 mg, bid
     Route: 048
  10. MAGNESIUM OXIDE [Concomitant]
     Dosage: 5 mg, tid
     Route: 048
  11. OMEGA-3 [Concomitant]
     Dosage: UNK, QD
  12. PROTONIX [Concomitant]
     Dosage: 20 mg, bid
     Route: 048
  13. PAXIL [Concomitant]
     Dosage: 10 mg, qd
     Route: 048
  14. POTASSIUM [Concomitant]
     Dosage: 20 mg, bid
     Route: 048
  15. PREDNISONE [Concomitant]
     Dosage: 10 mg, qd
     Route: 048
  16. CARAFATE [Concomitant]
     Dosage: 0.2 mg, bid
     Route: 048
  17. BACTRIM DS [Concomitant]
     Indication: PROPHYLAXIS
     Dosage: 1 tablet 3 per week MWF
     Route: 048
  18. MICARDIS [Concomitant]
     Dosage: 20 mg, qd
     Route: 048
  19. TYLENOL [Concomitant]
     Dosage: UNK, prn
  20. PERCOCET [Concomitant]
     Dosage: UNK, prn
  21. ZYRTEC [Concomitant]
     Dosage: 10 mg, qd
     Route: 048
  22. FLEXERIL [Concomitant]
     Dosage: 10 mg, prn tid
     Route: 048
  23. GUAIFENESIN [Concomitant]
     Dosage: UNK, prn
  24. ZOFRAN [Concomitant]
     Dosage: UNK, prn
  25. SOLU-CORTEF [Concomitant]
     Dosage: 100 mg, tid
  26. MICONAZOLE [Concomitant]
     Dosage: UNK
     Route: 061
  27. MICONAZOLE [Concomitant]
     Route: 061
  28. FISH OIL [Concomitant]
     Dosage: UNK, prn

REACTIONS (2)
  - Multi-organ failure [Fatal]
  - Cholelithiasis [Unknown]
